FAERS Safety Report 12395659 (Version 1)
Quarter: 2016Q2

REPORT INFORMATION
  Report Type: Spontaneous
  Country: GB (occurrence: GB)
  Receive Date: 20160523
  Receipt Date: 20160523
  Transmission Date: 20160815
  Serious: Yes (Hospitalization)
  Sender: FDA-Public Use
  Company Number: GB-TEVA-660534ACC

PATIENT
  Age: 75 Year
  Sex: Male

DRUGS (7)
  1. WARFARIN [Suspect]
     Active Substance: WARFARIN
     Indication: ATRIAL FIBRILLATION
     Dosage: AS PER INR, BEEN ON THIS FOR OVER 10 YEARS
  2. INDORAMIN [Concomitant]
     Active Substance: INDORAMIN
     Dosage: 40 MILLIGRAM DAILY;
  3. TRAMADOL. [Concomitant]
     Active Substance: TRAMADOL
     Dates: start: 20160215
  4. SIMVASTATIN. [Concomitant]
     Active Substance: SIMVASTATIN
     Dosage: 40 MILLIGRAM DAILY; AT NIGHT
  5. CODEINE [Concomitant]
     Active Substance: CODEINE
     Dosage: 30 MG 1-2 4 TIMES A DAY
     Dates: start: 20160204
  6. FLECAINIDE [Concomitant]
     Active Substance: FLECAINIDE
     Dosage: 200 MILLIGRAM DAILY;
  7. PARACETAMOL [Concomitant]
     Active Substance: ACETAMINOPHEN
     Dosage: 4 TIMES A DAY AS NEEDED
     Dates: start: 20160215

REACTIONS (6)
  - Gastrointestinal haemorrhage [Recovered/Resolved]
  - Dizziness [Unknown]
  - Faeces discoloured [Unknown]
  - Gastric antral vascular ectasia [Unknown]
  - Abdominal pain upper [Unknown]
  - International normalised ratio increased [Unknown]

NARRATIVE: CASE EVENT DATE: 20160223
